FAERS Safety Report 14259346 (Version 2)
Quarter: 2018Q1

REPORT INFORMATION
  Report Type: Spontaneous
  Country: SI (occurrence: SI)
  Receive Date: 20171207
  Receipt Date: 20180125
  Transmission Date: 20180508
  Serious: Yes (Death)
  Sender: FDA-Public Use
  Company Number: SI-JNJFOC-20171128012

PATIENT
  Age: 87 Year
  Sex: Female

DRUGS (3)
  1. XARELTO [Suspect]
     Active Substance: RIVAROXABAN
     Indication: ATRIAL FIBRILLATION
     Route: 048
  2. CONCOR [Concomitant]
     Active Substance: BISOPROLOL FUMARATE
     Route: 065
  3. APROVEL [Concomitant]
     Active Substance: IRBESARTAN
     Route: 065

REACTIONS (5)
  - Cerebral haemorrhage [Fatal]
  - Intracranial haematoma [Fatal]
  - Hemiplegia [Fatal]
  - Altered state of consciousness [Fatal]
  - Hernia [Fatal]

NARRATIVE: CASE EVENT DATE: 20171113
